FAERS Safety Report 7880985-1 (Version None)
Quarter: 2011Q4

REPORT INFORMATION
  Report Type: 
  Country: None (occurrence: None)
  Receive Date: 20111101
  Receipt Date: 20111026
  Transmission Date: 20120403
  Serious: Yes (Disabling)
  Sender: FDA-Public Use
  Company Number: US-MERCK-1104USA02995

PATIENT
  Age: 51 Year
  Sex: Male

DRUGS (7)
  1. FINASTERIDE [Suspect]
     Indication: ALOPECIA
     Route: 048
     Dates: start: 20100219, end: 20100101
  2. LAMICTAL [Concomitant]
     Route: 048
     Dates: start: 20090819
  3. LUNESTA [Concomitant]
     Route: 048
     Dates: start: 20090819
  4. PROSCAR [Suspect]
     Route: 065
     Dates: start: 20100219, end: 20100101
  5. PROPECIA [Suspect]
     Indication: ALOPECIA
     Route: 048
     Dates: start: 20100219, end: 20100101
  6. TRAZODONE HYDROCHLORIDE [Concomitant]
     Route: 065
  7. WELLBUTRIN XL [Concomitant]
     Route: 048
     Dates: start: 20090819

REACTIONS (10)
  - EMOTIONAL DISTRESS [None]
  - SEXUAL DYSFUNCTION [None]
  - ERECTILE DYSFUNCTION [None]
  - TESTICULAR ATROPHY [None]
  - PENIS DISORDER [None]
  - DEPRESSION [None]
  - INAPPROPRIATE SCHEDULE OF DRUG ADMINISTRATION [None]
  - ANXIETY [None]
  - WRONG TECHNIQUE IN DRUG USAGE PROCESS [None]
  - TESTICULAR PAIN [None]
